FAERS Safety Report 4338676-X (Version None)
Quarter: 2004Q2

REPORT INFORMATION
  Report Type: 
  Country: None (occurrence: None)
  Receive Date: 20040409
  Receipt Date: 20040405
  Transmission Date: 20050107
  Serious: Yes (Disabling)
  Sender: FDA-Public Use
  Company Number: 2004UW03475

PATIENT
  Age: 60 Year
  Sex: Female
  Weight: 77.1115 kg

DRUGS (4)
  1. NEXIUM [Suspect]
     Indication: DYSPEPSIA
     Dosage: 40 MG PO
     Route: 048
     Dates: start: 20040202, end: 20040209
  2. NEXIUM [Suspect]
     Indication: GASTROOESOPHAGEAL REFLUX DISEASE
     Dosage: 40 MG PO
     Route: 048
     Dates: start: 20040202, end: 20040209
  3. THYROID TAB [Concomitant]
  4. MULTI-VITAMIN [Concomitant]

REACTIONS (8)
  - DISORIENTATION [None]
  - DRY MOUTH [None]
  - DRY SKIN [None]
  - GASTROINTESTINAL HAEMORRHAGE [None]
  - KERATOCONJUNCTIVITIS SICCA [None]
  - MEMORY IMPAIRMENT [None]
  - MICTURITION FREQUENCY DECREASED [None]
  - STOMATITIS [None]
